FAERS Safety Report 16412708 (Version 9)
Quarter: 2025Q3

REPORT INFORMATION
  Report Type: Report from Study
  Country: EU (occurrence: EU)
  Receive Date: 20190611
  Receipt Date: 20250812
  Transmission Date: 20251021
  Serious: Yes (Life-Threatening, Disabling, Other)
  Sender: AUROBINDO
  Company Number: None

PATIENT
  Age: 59 Year
  Sex: Male
  Weight: 100 kg

DRUGS (5)
  1. LEVETIRACETAM [Suspect]
     Active Substance: LEVETIRACETAM
     Indication: Epilepsy
     Route: 065
  2. METHADONE [Suspect]
     Active Substance: METHADONE HYDROCHLORIDE
     Indication: Glioblastoma multiforme
     Route: 048
  3. METHADONE [Suspect]
     Active Substance: METHADONE HYDROCHLORIDE
     Route: 048
  4. TEMOZOLOMIDE [Suspect]
     Active Substance: TEMOZOLOMIDE
     Indication: Glioblastoma multiforme
     Route: 065
  5. DEXAMETHASONE [Suspect]
     Active Substance: DEXAMETHASONE
     Indication: Brain oedema
     Route: 048

REACTIONS (11)
  - Head injury [Not Recovered/Not Resolved]
  - Nausea [Unknown]
  - Constipation [Unknown]
  - Gait disturbance [Not Recovered/Not Resolved]
  - Thrombocytopenia [Unknown]
  - Confusional state [Unknown]
  - Fall [Not Recovered/Not Resolved]
  - Craniocerebral injury [Unknown]
  - Product use in unapproved indication [Unknown]
  - Overdose [Unknown]
  - Intentional product misuse [Unknown]

NARRATIVE: CASE EVENT DATE: 20180717
